FAERS Safety Report 6057299-8 (Version None)
Quarter: 2009Q1

REPORT INFORMATION
  Report Type: 
  Country: None (occurrence: None)
  Receive Date: 20090129
  Receipt Date: 20080807
  Transmission Date: 20090719
  Serious: No
  Sender: FDA-Public Use
  Company Number: A0742952A

PATIENT
  Age: 18 Year
  Sex: Male
  Weight: 72.7 kg

DRUGS (3)
  1. WELLBUTRIN [Suspect]
     Indication: DEPRESSION
     Route: 048
     Dates: start: 20010101
  2. VYVANSE [Suspect]
     Indication: ATTENTION DEFICIT/HYPERACTIVITY DISORDER
     Dosage: 70MG PER DAY
     Route: 048
     Dates: start: 20070801
  3. METHAMPHETAMINE HYDROCHLORIDE [Suspect]

REACTIONS (8)
  - ANGER [None]
  - CRYING [None]
  - DEPRESSED MOOD [None]
  - DISTURBANCE IN ATTENTION [None]
  - DRUG SCREEN POSITIVE [None]
  - INSOMNIA [None]
  - IRRITABILITY [None]
  - MIDDLE INSOMNIA [None]
